FAERS Safety Report 6609330-6 (Version None)
Quarter: 2010Q1

REPORT INFORMATION
  Report Type: 
  Country: None (occurrence: None)
  Receive Date: 20100302
  Receipt Date: 20100222
  Transmission Date: 20100710
  Serious: Yes (Hospitalization)
  Sender: FDA-Public Use
  Company Number: US-BIOGENIDEC-2008BI020136

PATIENT
  Age: 52 Year
  Sex: Male
  Weight: 88 kg

DRUGS (9)
  1. TYSABRI [Suspect]
     Indication: MULTIPLE SCLEROSIS
     Route: 042
     Dates: start: 20080611, end: 20080611
  2. COUMADIN [Concomitant]
     Indication: ANTICOAGULANT THERAPY
  3. COUMADIN [Concomitant]
  4. BACLOFEN [Concomitant]
     Indication: DRUG USE FOR UNKNOWN INDICATION
  5. FLOMAX [Concomitant]
     Indication: DRUG USE FOR UNKNOWN INDICATION
  6. METOPROLOL SUCCINATE [Concomitant]
     Indication: ATRIAL FIBRILLATION
  7. CLONAZEPAM [Concomitant]
     Indication: DRUG USE FOR UNKNOWN INDICATION
  8. FOSAMAX [Concomitant]
     Indication: DRUG USE FOR UNKNOWN INDICATION
  9. MULTI-VITAMIN [Concomitant]
     Indication: DRUG USE FOR UNKNOWN INDICATION

REACTIONS (12)
  - ABNORMAL DREAMS [None]
  - BACTERIAL SEPSIS [None]
  - DEPRESSION [None]
  - FALL [None]
  - FATIGUE [None]
  - HALLUCINATION [None]
  - HYPOAESTHESIA [None]
  - IMPACTED FRACTURE [None]
  - MUSCLE ATROPHY [None]
  - MUSCLE TWITCHING [None]
  - TENSION [None]
  - WEIGHT DECREASED [None]
